FAERS Safety Report 7831402-9 (Version None)
Quarter: 2011Q4

REPORT INFORMATION
  Report Type: 
  Country: None (occurrence: None)
  Receive Date: 20111021
  Receipt Date: 20111007
  Transmission Date: 20120403
  Serious: Yes (Hospitalization)
  Sender: FDA-Public Use
  Company Number: US-WATSON-2011-16197

PATIENT
  Sex: Female

DRUGS (1)
  1. GELNIQUE [Suspect]
     Indication: PRODUCT USED FOR UNKNOWN INDICATION
     Dosage: 1 APPLICATION, DAILY
     Route: 061
     Dates: start: 20110815, end: 20110828

REACTIONS (2)
  - HYSTERECTOMY [None]
  - DRUG INEFFECTIVE [None]
